FAERS Safety Report 13876819 (Version 3)
Quarter: 2017Q3

REPORT INFORMATION
  Report Type: Spontaneous
  Country: JP (occurrence: JP)
  Receive Date: 20170817
  Receipt Date: 20170906
  Transmission Date: 20171127
  Serious: Yes (Other)
  Sender: FDA-Public Use
  Company Number: JP-009507513-1708JPN007263

PATIENT
  Age: 40 Year
  Sex: Female

DRUGS (2)
  1. GLYCERIN. [Suspect]
     Active Substance: GLYCERIN
     Indication: PROPHYLAXIS
     Dosage: UNK
     Route: 041
  2. DEXAMETHASONE. [Suspect]
     Active Substance: DEXAMETHASONE
     Indication: PROPHYLAXIS
     Dosage: 3.3 MG, UNK
     Route: 041

REACTIONS (4)
  - Premature baby [Unknown]
  - Exposure during pregnancy [Unknown]
  - Low birth weight baby [Unknown]
  - Off label use [Unknown]
